FAERS Safety Report 18947402 (Version 1)
Quarter: 2021Q1

REPORT INFORMATION
  Report Type: Spontaneous
  Country: CH (occurrence: CH)
  Receive Date: 20210226
  Receipt Date: 20210226
  Transmission Date: 20210420
  Serious: Yes (Other)
  Sender: FDA-Public Use
  Company Number: CH-MYLANLABS-2021M1011570

PATIENT
  Age: 72 Year
  Sex: Male
  Weight: 87 kg

DRUGS (10)
  1. BRUFEN [Suspect]
     Active Substance: IBUPROFEN
     Dosage: 600 MILLIGRAM, QID
  2. INFLAMAC                           /00372304/ [Suspect]
     Active Substance: DICLOFENAC POTASSIUM
     Indication: KNEE OPERATION
     Dosage: 75 MILLIGRAM, BID
     Route: 048
  3. NALOXONE W/OXYCODONE [Suspect]
     Active Substance: NALOXONE HYDROCHLORIDE\OXYCODONE HYDROCHLORIDE
     Indication: KNEE OPERATION
     Dosage: UNK
  4. METFORMIN [Concomitant]
     Active Substance: METFORMIN HYDROCHLORIDE
     Dosage: 1000 MILLIGRAM, QD
  5. BRUFEN [Suspect]
     Active Substance: IBUPROFEN
     Indication: KNEE OPERATION
     Dosage: 600 MILLIGRAM, TID
  6. INFLAMAC                           /00372304/ [Suspect]
     Active Substance: DICLOFENAC POTASSIUM
     Dosage: 75 MILLIGRAM, QID
     Route: 048
  7. CREON [Concomitant]
     Active Substance: PANCRELIPASE AMYLASE\PANCRELIPASE LIPASE\PANCRELIPASE PROTEASE
     Dosage: UNK, BID
  8. COVERSUM N [Concomitant]
     Active Substance: PERINDOPRIL
     Dosage: 5 MILLIGRAM, QD
  9. METAMIZOL                          /06276704/ [Suspect]
     Active Substance: METAMIZOLE SODIUM
     Indication: KNEE OPERATION
     Dosage: 500 MILLIGRAM, QID
  10. ETOFENAMATE [Suspect]
     Active Substance: ETOFENAMATE
     Indication: KNEE OPERATION
     Dosage: UNK
     Route: 061

REACTIONS (2)
  - Insomnia [Recovering/Resolving]
  - Restlessness [Recovering/Resolving]

NARRATIVE: CASE EVENT DATE: 20201014
